FAERS Safety Report 23248629 (Version 1)
Quarter: 2023Q4

REPORT INFORMATION
  Report Type: Report from Study
  Country: US (occurrence: US)
  Receive Date: 20231201
  Receipt Date: 20231201
  Transmission Date: 20240109
  Serious: No
  Sender: FDA-Public Use
  Company Number: US-ACADIA PHARMACEUTICALS INC.-ACA-2023-PIM-005144

PATIENT
  Sex: Female

DRUGS (2)
  1. NUPLAZID [Suspect]
     Active Substance: PIMAVANSERIN TARTRATE
     Indication: Parkinson^s disease psychosis
     Dosage: 34 MILLIGRAM, QD
     Route: 048
  2. NUPLAZID [Suspect]
     Active Substance: PIMAVANSERIN TARTRATE
     Dosage: CUT THE PILL IN HALF AND TAKE IT TWICE A DAY
     Route: 048

REACTIONS (6)
  - Dizziness [Unknown]
  - Asthenia [Unknown]
  - Blood pressure increased [Unknown]
  - Feeling of despair [Unknown]
  - Nausea [Unknown]
  - Wrong technique in product usage process [Unknown]
